FAERS Safety Report 8901520 (Version 2)
Quarter: 2014Q3

REPORT INFORMATION
  Report Type: Spontaneous
  Country: US (occurrence: US)
  Receive Date: 20121109
  Receipt Date: 20140826
  Transmission Date: 20150326
  Serious: Yes (Hospitalization, Other)
  Sender: FDA-Public Use
  Company Number: US-009507513-2009SP017666

PATIENT
  Sex: Female
  Weight: 58.97 kg

DRUGS (2)
  1. LODINE [Concomitant]
     Active Substance: ETODOLAC
     Indication: PAIN
     Dosage: PRN
     Route: 048
  2. NUVARING [Suspect]
     Active Substance: ETHINYL ESTRADIOL\ETONOGESTREL
     Indication: CONTRACEPTION
     Dosage: 0.12-0.015 MG/24 HR.
     Route: 067
     Dates: start: 20060516, end: 200702

REACTIONS (8)
  - Lung infiltration [Unknown]
  - Pityriasis rosea [Unknown]
  - Pyrexia [Unknown]
  - Pulmonary embolism [Unknown]
  - Pain [Unknown]
  - Headache [Unknown]
  - Inappropriate schedule of drug administration [Unknown]
  - Pleural effusion [Unknown]

NARRATIVE: CASE EVENT DATE: 20060516
